FAERS Safety Report 10340815 (Version 2)
Quarter: 2014Q3

REPORT INFORMATION
  Report Type: Spontaneous
  Country: US (occurrence: US)
  Receive Date: 20140724
  Receipt Date: 20140828
  Transmission Date: 20150326
  Serious: No
  Sender: FDA-Public Use
  Company Number: US-B.I. PHARMACEUTICALS,INC./RIDGEFIELD-2014-BI-32290BP

PATIENT
  Age: 81 Year
  Sex: Female
  Weight: 50 kg

DRUGS (9)
  1. LANSOPRAZOLE. [Concomitant]
     Active Substance: LANSOPRAZOLE
     Indication: GASTRIC ULCER
     Dosage: 30 MG
     Route: 048
     Dates: start: 2011
  2. METFORMIN [Concomitant]
     Active Substance: METFORMIN HYDROCHLORIDE
     Indication: TYPE 2 DIABETES MELLITUS
     Dosage: 500 MG
     Route: 048
     Dates: start: 1999
  3. AGGRENOX [Suspect]
     Active Substance: ASPIRIN\DIPYRIDAMOLE
     Indication: PRODUCT USED FOR UNKNOWN INDICATION
     Dosage: STRENGTH: 25 MG / 200 MG; DAILY DOSE: 50 MG/ 400 MG
     Route: 048
     Dates: start: 1999
  4. ESCITALOPRAM [Concomitant]
     Active Substance: ESCITALOPRAM OXALATE
     Indication: DEPRESSION
     Dosage: 20 MG
     Route: 048
     Dates: start: 2007
  5. HYDROCODONE [Concomitant]
     Active Substance: HYDROCODONE
     Indication: MUSCULOSKELETAL DISCOMFORT
     Dosage: STRENGTH: 10 MG/325 MG; DAILY DOSE: 40 MG/1300 MG
     Route: 048
     Dates: start: 201307
  6. LANSOPRAZOLE. [Concomitant]
     Active Substance: LANSOPRAZOLE
     Indication: DIAPHRAGMATIC HERNIA
  7. REFRESH [Concomitant]
     Active Substance: UNSPECIFIED INGREDIENT
     Indication: DRY EYE
     Dosage: 1 ANZ
     Route: 050
     Dates: start: 201406
  8. LISINOPRIL. [Concomitant]
     Active Substance: LISINOPRIL
     Dosage: 40 MG
     Route: 048
  9. DRY EYE OMEGA [Concomitant]
     Indication: DRY EYE
     Dosage: 1 ANZ
     Route: 048
     Dates: start: 201406, end: 201406

REACTIONS (3)
  - Product quality issue [Unknown]
  - Abnormal loss of weight [Not Recovered/Not Resolved]
  - Contusion [Not Recovered/Not Resolved]

NARRATIVE: CASE EVENT DATE: 201404
